FAERS Safety Report 24361725 (Version 1)
Quarter: 2024Q3

REPORT INFORMATION
  Report Type: Spontaneous
  Country: US (occurrence: None)
  Receive Date: 20240925
  Receipt Date: 20240925
  Transmission Date: 20241017
  Serious: Yes (Hospitalization)
  Sender: Public
  Company Number: None

PATIENT
  Age: 57 Year
  Sex: Male
  Weight: 87.1 kg

DRUGS (5)
  1. FLUOROURACIL [Suspect]
     Active Substance: FLUOROURACIL
     Dates: end: 20240830
  2. XELODA [Suspect]
     Active Substance: CAPECITABINE
     Dates: end: 20240823
  3. IRINOTECAN [Suspect]
     Active Substance: IRINOTECAN
     Dates: end: 20240828
  4. LEUCOVORIN CALCIUM [Suspect]
     Active Substance: LEUCOVORIN CALCIUM
     Dates: end: 20240828
  5. ELOXATIN [Suspect]
     Active Substance: OXALIPLATIN
     Dates: end: 20240828

REACTIONS (6)
  - Muscular weakness [None]
  - Hypoaesthesia [None]
  - Paraesthesia [None]
  - Grip strength decreased [None]
  - Paraesthesia [None]
  - Magnetic resonance imaging abnormal [None]

NARRATIVE: CASE EVENT DATE: 20240916
